FAERS Safety Report 20301516 (Version 2)
Quarter: 2022Q1

REPORT INFORMATION
  Report Type: Spontaneous
  Country: LT (occurrence: LT)
  Receive Date: 20220105
  Receipt Date: 20220119
  Transmission Date: 20220423
  Serious: Yes (Death, Hospitalization)
  Sender: FDA-Public Use
  Company Number: LT-GE HEALTHCARE-2021CSU006780

PATIENT

DRUGS (4)
  1. OMNIPAQUE [Suspect]
     Active Substance: IOHEXOL
     Indication: Computerised tomogram
     Dosage: ^755MG/ML 100ML^, ONCE
     Route: 042
     Dates: start: 20211217, end: 20211217
  2. OMNIPAQUE [Suspect]
     Active Substance: IOHEXOL
     Indication: Colorectal cancer
  3. OMNIPAQUE [Suspect]
     Active Substance: IOHEXOL
     Indication: Metastases to lung
  4. OMNIPAQUE [Suspect]
     Active Substance: IOHEXOL
     Indication: Metastases to liver

REACTIONS (1)
  - Cardiopulmonary failure [Fatal]

NARRATIVE: CASE EVENT DATE: 20211217
